FAERS Safety Report 10100597 (Version 1)
Quarter: 2014Q2

REPORT INFORMATION
  Report Type: Spontaneous
  Country: FR (occurrence: FR)
  Receive Date: 20140423
  Receipt Date: 20140423
  Transmission Date: 20141212
  Serious: Yes (Death)
  Sender: FDA-Public Use
  Company Number: FR-BAXTER-2014BAX019593

PATIENT
  Age: 66 Year
  Sex: 0

DRUGS (2)
  1. ENDOXAN 1000 MG, POUDRE POUR SOLUTION INJECTABLE [Suspect]
     Indication: PARANEOPLASTIC SYNDROME
     Route: 065
  2. KIOVIG, 100 MG/ML, SOLUTION POUR PERFUSION [Suspect]
     Indication: PARANEOPLASTIC SYNDROME

REACTIONS (1)
  - Respiratory disorder [Fatal]
